FAERS Safety Report 13417220 (Version 1)
Quarter: 2017Q2

REPORT INFORMATION
  Report Type: Spontaneous
  Country: US (occurrence: US)
  Receive Date: 20170406
  Receipt Date: 20170406
  Transmission Date: 20170830
  Serious: No
  Sender: FDA-Public Use
  Company Number: US-PERRIGO-16US018167

PATIENT
  Age: 71 Year
  Sex: Female
  Weight: 48.73 kg

DRUGS (2)
  1. COLISTIMETHATE SODIUM. [Suspect]
     Active Substance: COLISTIMETHATE SODIUM
     Indication: LUNG INFECTION
     Dosage: 150 MG, SINGLE
     Route: 055
     Dates: start: 20160707, end: 20160707
  2. COLISTIMETHATE SODIUM. [Suspect]
     Active Substance: COLISTIMETHATE SODIUM
     Dosage: 150 MG, QD
     Route: 055
     Dates: start: 20160711

REACTIONS (2)
  - No adverse event [Unknown]
  - Incorrect route of drug administration [Not Recovered/Not Resolved]

NARRATIVE: CASE EVENT DATE: 20160707
